FAERS Safety Report 4875319-0 (Version None)
Quarter: 2006Q1

REPORT INFORMATION
  Report Type: 
  Country: None (occurrence: None)
  Receive Date: 20060109
  Receipt Date: 20051005
  Transmission Date: 20060701
  Serious: Yes (Hospitalization)
  Sender: FDA-Public Use
  Company Number: US-MERCK-0510USA05360

PATIENT
  Age: 78 Year
  Sex: Male
  Weight: 78 kg

DRUGS (3)
  1. VIOXX [Suspect]
     Indication: ARTHRALGIA
     Route: 048
     Dates: start: 19990101, end: 20040101
  2. VIOXX [Suspect]
     Indication: BURSITIS
     Route: 048
     Dates: start: 19990101, end: 20040101
  3. TYLENOL [Concomitant]
     Route: 065

REACTIONS (6)
  - CARDIAC FAILURE CONGESTIVE [None]
  - CORONARY ARTERY DISEASE [None]
  - DIARRHOEA [None]
  - MYOCARDIAL INFARCTION [None]
  - PARATHYROID DISORDER [None]
  - SUBCLAVIAN VEIN THROMBOSIS [None]
